FAERS Safety Report 9552086 (Version 1)
Quarter: 2013Q3

REPORT INFORMATION
  Report Type: Spontaneous
  Country: US (occurrence: US)
  Receive Date: 20130925
  Receipt Date: 20130925
  Transmission Date: 20140515
  Serious: Yes (Hospitalization, Other)
  Sender: FDA-Public Use
  Company Number: PHEH2013US019868

PATIENT
  Sex: Female

DRUGS (1)
  1. LETROZOLE [Suspect]
     Indication: INFERTILITY
     Dosage: UNK UKN, UNK

REACTIONS (5)
  - Gastroenteritis viral [Unknown]
  - Abortion spontaneous [Unknown]
  - Antinuclear antibody positive [Unknown]
  - Autoimmune hepatitis [Unknown]
  - Maternal exposure during pregnancy [Unknown]
